FAERS Safety Report 9845004 (Version 1)
Quarter: 2014Q1

REPORT INFORMATION
  Report Type: Spontaneous
  Country: US (occurrence: US)
  Receive Date: 20140127
  Receipt Date: 20140127
  Transmission Date: 20141002
  Serious: No
  Sender: FDA-Public Use
  Company Number: US-009507513-1401USA011760

PATIENT
  Age: 24 Year
  Sex: Female
  Weight: 57.6 kg

DRUGS (1)
  1. NUVARING [Suspect]
     Indication: CONTRACEPTION
     Dosage: 3 WEEK IN 1 WEEK OUT
     Route: 067
     Dates: start: 201105

REACTIONS (2)
  - Fungal infection [Unknown]
  - Metrorrhagia [Unknown]
